FAERS Safety Report 8426570 (Version 3)
Quarter: 2013Q1

REPORT INFORMATION
  Report Type: Spontaneous
  Country: US (occurrence: US)
  Receive Date: 20120227
  Receipt Date: 20130128
  Transmission Date: 20140127
  Serious: No
  Sender: FDA-Public Use
  Company Number: US-BIOGENIDEC-2012BI006733

PATIENT
  Age: 51 None
  Sex: Female

DRUGS (1)
  1. TYSABRI [Suspect]
     Indication: MULTIPLE SCLEROSIS
     Route: 042
     Dates: start: 20110914

REACTIONS (9)
  - Haemorrhage [Not Recovered/Not Resolved]
  - Burning sensation [Recovered/Resolved]
  - Nervousness [Not Recovered/Not Resolved]
  - Pain in extremity [Recovered/Resolved]
  - Intervertebral disc protrusion [Not Recovered/Not Resolved]
  - Balance disorder [Recovered/Resolved]
  - Feeling abnormal [Not Recovered/Not Resolved]
  - Influenza [Not Recovered/Not Resolved]
  - Multiple sclerosis [Not Recovered/Not Resolved]
